FAERS Safety Report 5065995-4 (Version None)
Quarter: 2006Q3

REPORT INFORMATION
  Report Type: 
  Country: None (occurrence: None)
  Receive Date: 20060726
  Receipt Date: 20060713
  Transmission Date: 20061208
  Serious: Yes (Hospitalization)
  Sender: FDA-Public Use
  Company Number: 2006088391

PATIENT
  Age: 63 Year
  Sex: Female

DRUGS (4)
  1. SULFASALAZINE [Suspect]
     Indication: POLYARTHRITIS
     Dosage: 500 MG (500 MG, 1 IN 1 D), ORAL
     Route: 048
     Dates: start: 20060601, end: 20060609
  2. PARACETAMOL (PARACETAOL) [Concomitant]
  3. KETOPROFEN [Concomitant]
  4. BETAXOLOL [Concomitant]

REACTIONS (1)
  - RASH GENERALISED [None]
